FAERS Safety Report 15850863 (Version 1)
Quarter: 2019Q1

REPORT INFORMATION
  Report Type: Spontaneous
  Country: ES (occurrence: ES)
  Receive Date: 20190122
  Receipt Date: 20190122
  Transmission Date: 20190417
  Serious: Yes (Other)
  Sender: FDA-Public Use
  Company Number: ES-TEVA-2019-ES-1001451

PATIENT
  Sex: Female

DRUGS (1)
  1. ACETATO DE GLATIRAMERO [Suspect]
     Active Substance: GLATIRAMER ACETATE
     Indication: MULTIPLE SCLEROSIS
     Dosage: 1 INY EVERY 48 H.
     Route: 058
     Dates: start: 20160422, end: 20181026

REACTIONS (1)
  - Atrophy [Recovering/Resolving]

NARRATIVE: CASE EVENT DATE: 20180401
